FAERS Safety Report 7913497-7 (Version None)
Quarter: 2011Q4

REPORT INFORMATION
  Report Type: 
  Country: None (occurrence: None)
  Receive Date: 20111110
  Receipt Date: 20111107
  Transmission Date: 20120403
  Serious: Yes (Death)
  Sender: FDA-Public Use
  Company Number: 2011SP048436

PATIENT
  Age: 70 Year
  Sex: Male

DRUGS (9)
  1. TEMODAL [Suspect]
     Indication: GLIOBLASTOMA MULTIFORME
     Dosage: 100 MG;QD;PO ; 30 MG;QD;PO
     Route: 048
     Dates: start: 20110906, end: 20110930
  2. TEMODAL [Suspect]
     Indication: GLIOBLASTOMA MULTIFORME
     Dosage: 100 MG;QD;PO ; 30 MG;QD;PO
     Route: 048
     Dates: start: 20110906, end: 20110930
  3. TEMODAL [Suspect]
  4. SOLDESAM /0016002/ [Concomitant]
  5. BACTRIM /0086101/ [Concomitant]
  6. LANSOPRAZOLE [Concomitant]
  7. TEMODAL [Suspect]
  8. TEMODAL [Suspect]
  9. LASIX [Concomitant]

REACTIONS (3)
  - BONE MARROW TOXICITY [None]
  - BONE MARROW FAILURE [None]
  - HYPOTENSION [None]
